FAERS Safety Report 18436650 (Version 1)
Quarter: 2020Q4

REPORT INFORMATION
  Report Type: Spontaneous
  Country: US (occurrence: US)
  Receive Date: 20201028
  Receipt Date: 20201028
  Transmission Date: 20210114
  Serious: No
  Sender: FDA-Public Use
  Company Number: US-AKCEA THERAPEUTICS-2020IS001377

PATIENT
  Age: 64 Year
  Sex: Male

DRUGS (9)
  1. ABILIFY [Concomitant]
     Active Substance: ARIPIPRAZOLE
  2. VITAMIN D3 [Concomitant]
     Active Substance: CHOLECALCIFEROL
     Route: 065
  3. CYMBALTA [Concomitant]
     Active Substance: DULOXETINE HYDROCHLORIDE
     Route: 065
  4. ISSD (INTEGRATED SYRINGE SAFETY DEVICE) [Suspect]
     Active Substance: DEVICE
  5. TEGSEDI [Suspect]
     Active Substance: INOTERSEN SODIUM
     Indication: HEREDITARY NEUROPATHIC AMYLOIDOSIS
     Route: 058
     Dates: start: 20200813
  6. ASPIRIN 81 [Concomitant]
     Active Substance: ASPIRIN
     Route: 048
  7. VYNDAGEL [Concomitant]
     Active Substance: TAFAMIDIS MEGLUMINE
  8. ATORVASTATIN CALCIUM. [Concomitant]
     Active Substance: ATORVASTATIN CALCIUM
  9. FUROSEMIDE-VIAL [Concomitant]

REACTIONS (9)
  - Urine analysis abnormal [Not Recovered/Not Resolved]
  - Injection site pain [Unknown]
  - Blood creatinine increased [Not Recovered/Not Resolved]
  - Drug ineffective [Unknown]
  - Glomerular filtration rate decreased [Not Recovered/Not Resolved]
  - Urinary casts [Not Recovered/Not Resolved]
  - Bacterial test positive [Not Recovered/Not Resolved]
  - Protein urine present [Unknown]
  - Crystal urine present [Not Recovered/Not Resolved]

NARRATIVE: CASE EVENT DATE: 202009
